FAERS Safety Report 20363040 (Version 2)
Quarter: 2022Q1

REPORT INFORMATION
  Report Type: Other
  Country: US (occurrence: None)
  Receive Date: 20220121
  Receipt Date: 20220330
  Transmission Date: 20220423
  Serious: Yes (Hospitalization)
  Sender: FDA-Public Use
  Company Number: US-ROCHE-3004531

PATIENT
  Age: 40 Year
  Sex: Female
  Weight: 86.260 kg

DRUGS (6)
  1. ENSPRYNG [Suspect]
     Active Substance: SATRALIZUMAB-MWGE
     Indication: Neuromyelitis optica spectrum disorder
     Dosage: ONGOING: YES
     Route: 065
     Dates: start: 202105
  2. ENSPRYNG [Suspect]
     Active Substance: SATRALIZUMAB-MWGE
     Indication: Demyelination
     Dosage: ONGOING YES
     Route: 065
     Dates: start: 20210708
  3. RITUXAN [Suspect]
     Active Substance: RITUXIMAB
     Indication: Product used for unknown indication
     Dosage: ONGOING: UNKNOWN
     Route: 065
  4. PROCARDIA (UNITED STATES) [Concomitant]
  5. NEURONTIN [Concomitant]
     Active Substance: GABAPENTIN
  6. ERGOCALCIFEROL [Concomitant]
     Active Substance: ERGOCALCIFEROL

REACTIONS (6)
  - Sinusitis [Not Recovered/Not Resolved]
  - Pneumonia [Unknown]
  - Chills [Unknown]
  - COVID-19 [Recovered/Resolved]
  - Product use issue [Unknown]
  - Product dose omission issue [Unknown]

NARRATIVE: CASE EVENT DATE: 20210901
